FAERS Safety Report 13197767 (Version 1)
Quarter: 2017Q1

REPORT INFORMATION
  Report Type: Spontaneous
  Country: US (occurrence: US)
  Receive Date: 20170208
  Receipt Date: 20170208
  Transmission Date: 20170428
  Serious: No
  Sender: FDA-Public Use
  Company Number: US-PFIZER INC-2017052127

PATIENT
  Age: 48 Year
  Sex: Female

DRUGS (1)
  1. DUAVEE [Suspect]
     Active Substance: BAZEDOXIFENE ACETATE\ESTROGENS, CONJUGATED
     Dosage: UNK

REACTIONS (8)
  - Dysmenorrhoea [Unknown]
  - Anxiety [Unknown]
  - Product use issue [Unknown]
  - Palpitations [Unknown]
  - Metrorrhagia [Unknown]
  - Hot flush [Unknown]
  - Crying [Unknown]
  - Mood swings [Unknown]
